FAERS Safety Report 5267419-0 (Version None)
Quarter: 2007Q1

REPORT INFORMATION
  Report Type: 
  Country: None (occurrence: None)
  Receive Date: 20070316
  Receipt Date: 20070305
  Transmission Date: 20070707
  Serious: Yes (Life-Threatening, Hospitalization)
  Sender: FDA-Public Use
  Company Number: DE-SHR-DE-2007-005269

PATIENT
  Age: 82 Year
  Sex: Male
  Weight: 95 kg

DRUGS (1)
  1. ULTRAVIST 300 [Suspect]
     Dosage: 60 ML, 1 DOSE
     Route: 042
     Dates: start: 20070208, end: 20070208

REACTIONS (3)
  - CARDIOVASCULAR DISORDER [None]
  - HYPERSENSITIVITY [None]
  - SWELLING [None]
